FAERS Safety Report 19129098 (Version 1)
Quarter: 2021Q2

REPORT INFORMATION
  Report Type: Spontaneous
  Country: US (occurrence: US)
  Receive Date: 20210413
  Receipt Date: 20210413
  Transmission Date: 20210717
  Serious: No
  Sender: FDA-Public Use
  Company Number: US-SA-2021SA119983

PATIENT
  Sex: Female

DRUGS (7)
  1. LISINOPRIL. [Concomitant]
     Active Substance: LISINOPRIL
  2. CITRACAL + D3 [Concomitant]
  3. BONIVA [Concomitant]
     Active Substance: IBANDRONATE SODIUM
  4. ASPIR 81 [Concomitant]
     Active Substance: ASPIRIN
  5. PRESERVISION LUTEIN [Concomitant]
     Active Substance: MINERALS\VITAMINS
  6. DUPIXENT [Suspect]
     Active Substance: DUPILUMAB
     Indication: DERMATITIS ATOPIC
     Dosage: 300 MG, QOW
     Route: 058
  7. SIMVASTATIN. [Concomitant]
     Active Substance: SIMVASTATIN

REACTIONS (1)
  - Injection site rash [Not Recovered/Not Resolved]
